FAERS Safety Report 25750736 (Version 2)
Quarter: 2025Q3

REPORT INFORMATION
  Report Type: Spontaneous
  Country: US (occurrence: US)
  Receive Date: 20250902
  Receipt Date: 20250915
  Transmission Date: 20251021
  Serious: Yes (Life-Threatening, Hospitalization, Other)
  Sender: ALKEM
  Company Number: None

PATIENT
  Age: 44 Year
  Sex: Female
  Weight: 40 kg

DRUGS (6)
  1. TACROLIMUS [Suspect]
     Active Substance: TACROLIMUS
     Indication: Immunosuppressant drug therapy
     Dosage: 7.5 MILLIGRAM, BID
     Route: 048
  2. TACROLIMUS [Suspect]
     Active Substance: TACROLIMUS
     Route: 048
  3. PANTOPRAZOLE [Suspect]
     Active Substance: PANTOPRAZOLE
     Indication: Oesophagitis
     Route: 065
  4. CLINDAMYCIN [Concomitant]
     Active Substance: CLINDAMYCIN
     Indication: Skin disorder
     Dosage: 450 MILLIGRAM, TID
     Route: 048
  5. MYCOPHENOLIC ACID [Concomitant]
     Active Substance: MYCOPHENOLIC ACID
     Indication: Immunosuppressant drug therapy
     Route: 065
  6. SUCRALFATE [Concomitant]
     Active Substance: SUCRALFATE
     Indication: Oesophagitis
     Route: 065

REACTIONS (7)
  - Large intestinal ulcer [Recovering/Resolving]
  - Iron deficiency anaemia [Recovering/Resolving]
  - Anaemia of chronic disease [Recovering/Resolving]
  - Shock haemorrhagic [Recovering/Resolving]
  - Oesophageal ulcer [Recovering/Resolving]
  - Throat tightness [Unknown]
  - Drug hypersensitivity [Unknown]
